FAERS Safety Report 17623362 (Version 2)
Quarter: 2021Q2

REPORT INFORMATION
  Report Type: Spontaneous
  Country: US (occurrence: US)
  Receive Date: 20200403
  Receipt Date: 20210403
  Transmission Date: 20210716
  Serious: Yes (Death, Other)
  Sender: FDA-Public Use
  Company Number: US-AMGEN-USASP2020052809

PATIENT

DRUGS (4)
  1. ACETAMINOPHEN. [Concomitant]
     Active Substance: ACETAMINOPHEN
     Dosage: UNK
  2. CARFILZOMIB [Suspect]
     Active Substance: CARFILZOMIB
     Indication: TRANSPLANT REJECTION
     Dosage: UNK
     Route: 065
  3. CARFILZOMIB [Suspect]
     Active Substance: CARFILZOMIB
     Indication: PLASMA CELL MYELOMA
  4. DIPHENHYDRAMINE. [Concomitant]
     Active Substance: DIPHENHYDRAMINE
     Dosage: UNK

REACTIONS (14)
  - Pneumonia [Fatal]
  - Donor specific antibody present [Unknown]
  - Pseudomonas infection [Unknown]
  - Bacteraemia [Unknown]
  - Staphylococcal infection [Unknown]
  - Acute kidney injury [Recovered/Resolved]
  - Neoplasm malignant [Fatal]
  - Infection [Unknown]
  - Transplant rejection [Fatal]
  - Respiratory tract infection [Unknown]
  - Drug ineffective for unapproved indication [Unknown]
  - Sinusitis [Unknown]
  - Pulmonary embolism [Fatal]
  - Off label use [Unknown]
